FAERS Safety Report 6372050-X (Version None)
Quarter: 2009Q3

REPORT INFORMATION
  Report Type: 
  Country: None (occurrence: None)
  Receive Date: 20090917
  Receipt Date: 20090907
  Transmission Date: 20100115
  Serious: Yes (Hospitalization)
  Sender: FDA-Public Use
  Company Number: 2009SP023966

PATIENT
  Age: 48 Year
  Sex: Male
  Weight: 94 kg

DRUGS (2)
  1. ROCURONIUM BROMIDE [Suspect]
     Indication: DRUG USE FOR UNKNOWN INDICATION
     Dosage: IV
     Route: 042
     Dates: start: 20090727
  2. SUCCINYLCHOLINE CHLORIDE [Concomitant]

REACTIONS (5)
  - BRADYCARDIA [None]
  - CARDIOVASCULAR INSUFFICIENCY [None]
  - HYPERHIDROSIS [None]
  - HYPOTENSION [None]
  - HYPOXIA [None]
